FAERS Safety Report 21960618 (Version 2)
Quarter: 2023Q2

REPORT INFORMATION
  Report Type: Report from Study
  Country: FR (occurrence: FR)
  Receive Date: 20230207
  Receipt Date: 20230525
  Transmission Date: 20230721
  Serious: Yes (Hospitalization, Other)
  Sender: FDA-Public Use
  Company Number: FR-NOVOPROD-1009647

PATIENT
  Age: 70 Year
  Sex: Female
  Weight: 90 kg

DRUGS (6)
  1. SEMAGLUTIDE [Suspect]
     Active Substance: SEMAGLUTIDE
     Dosage: UNK
     Dates: start: 20190708, end: 20191028
  2. SEMAGLUTIDE [Suspect]
     Active Substance: SEMAGLUTIDE
     Indication: Obesity
     Dosage: 0.24 MG, QW
     Route: 058
     Dates: start: 20190708, end: 20221121
  3. SEMAGLUTIDE [Suspect]
     Active Substance: SEMAGLUTIDE
     Dosage: UNK
     Dates: start: 20210412, end: 20221121
  4. TELMISARTAN [Concomitant]
     Active Substance: TELMISARTAN
     Indication: Transient ischaemic attack
     Dosage: 40.0,MG,
     Dates: start: 20220927, end: 20221130
  5. TELMISARTAN [Concomitant]
     Active Substance: TELMISARTAN
     Dosage: 80.0,MG,
     Dates: start: 20221201
  6. POTASSIUM CHLORIDE [Concomitant]
     Active Substance: POTASSIUM CHLORIDE
     Indication: Transient ischaemic attack
     Dosage: 1800.0,MG,
     Dates: start: 20221128

REACTIONS (1)
  - Weight decreased [Recovered/Resolved]

NARRATIVE: CASE EVENT DATE: 20221125
